FAERS Safety Report 6875963-5 (Version None)
Quarter: 2010Q3

REPORT INFORMATION
  Report Type: 
  Country: None (occurrence: None)
  Receive Date: 20100727
  Receipt Date: 20070712
  Transmission Date: 20110219
  Serious: Yes (Hospitalization)
  Sender: FDA-Public Use
  Company Number: US-PFIZER INC-2006120154

PATIENT
  Sex: Male

DRUGS (27)
  1. CELEBREX [Suspect]
     Dosage: 200 MG ONCE
     Route: 048
     Dates: start: 19990101, end: 19990901
  2. BEXTRA [Suspect]
     Indication: RHEUMATOID ARTHRITIS
     Dosage: 20 MG ONCE
     Route: 048
     Dates: start: 20011101, end: 20020127
  3. VIOXX [Suspect]
     Indication: RHEUMATOID ARTHRITIS
     Route: 048
     Dates: start: 19990901, end: 20040930
  4. APAP TAB [Concomitant]
     Dates: start: 20020501, end: 20030201
  5. ACETYLSALICYLIC ACID SRT [Concomitant]
     Dates: start: 20000101
  6. BUTALBITAL ACETAMINOPHEN AND CAFFEINE [Concomitant]
     Dates: start: 20011001, end: 20030301
  7. BUTALBITAL ACETAMINOPHEN AND CAFFEINE [Concomitant]
     Dates: start: 20040701
  8. DARVOCET [Concomitant]
     Dates: start: 19870101, end: 20000101
  9. ACETAMINOPHEN AND HYDROCODONE BITARTRATE [Concomitant]
     Dates: start: 20001101
  10. ACETAMINOPHEN AND HYDROCODONE BITARTRATE [Concomitant]
     Dates: start: 20030501, end: 20050201
  11. INDOMETHACIN [Concomitant]
     Dates: start: 20000101, end: 20000201
  12. OXYCODONE HYDROCHLORIDE W/PARACETAMOL [Concomitant]
     Dates: start: 20020201, end: 20020301
  13. PROPOXYPHENE NAPSYLATE W/ ACETAMINOPHEN [Concomitant]
     Dates: start: 20000501, end: 20010101
  14. QUININE SULFATE [Concomitant]
     Dates: start: 20000601, end: 20040701
  15. VICODIN [Concomitant]
     Dates: start: 20010101
  16. DIOVANE [Concomitant]
  17. ISOSORBIDE [Concomitant]
  18. FUROSEMIDE [Concomitant]
  19. LANOXIN [Concomitant]
  20. LIPITOR [Concomitant]
  21. LOTENSIN [Concomitant]
  22. NEXIUM [Concomitant]
  23. LOPRESSOR [Concomitant]
  24. METOPROLOL SUCCINATE [Concomitant]
  25. NORVASC [Concomitant]
  26. POTASSIUM [Concomitant]
  27. ZESTRIL [Concomitant]

REACTIONS (1)
  - MYOCARDIAL INFARCTION [None]
